FAERS Safety Report 7436884-2 (Version None)
Quarter: 2011Q2

REPORT INFORMATION
  Report Type: 
  Country: None (occurrence: None)
  Receive Date: 20110426
  Receipt Date: 20110324
  Transmission Date: 20111010
  Serious: Yes (Hospitalization, Other)
  Sender: FDA-Public Use
  Company Number: US-BAYER-2010-008035

PATIENT
  Age: 33 Year
  Sex: Female
  Weight: 73.469 kg

DRUGS (3)
  1. SPIRONOLACTONE [Concomitant]
     Dosage: 25 MG, QD
     Route: 048
     Dates: start: 20050101
  2. YAZ [Suspect]
     Indication: PRODUCT USED FOR UNKNOWN INDICATION
     Dosage: UNK
     Dates: start: 20070526, end: 20090629
  3. ANTIBIOTICS [Concomitant]

REACTIONS (4)
  - GAIT DISTURBANCE [None]
  - PAIN IN EXTREMITY [None]
  - THROMBOSIS [None]
  - DEEP VEIN THROMBOSIS [None]
